FAERS Safety Report 5884534-9 (Version None)
Quarter: 2008Q3

REPORT INFORMATION
  Report Type: 
  Country: None (occurrence: None)
  Receive Date: 20080911
  Receipt Date: 20080829
  Transmission Date: 20090109
  Serious: Yes (Death, Life-Threatening, Hospitalization)
  Sender: FDA-Public Use
  Company Number: 94976

PATIENT
  Age: 10 Month

DRUGS (1)
  1. ACETAMINOPHEN [Suspect]
     Dosage: 172 MG/KG/DAY

REACTIONS (4)
  - DRUG LEVEL INCREASED [None]
  - LIVER INJURY [None]
  - OVERDOSE [None]
  - TRANSAMINASES INCREASED [None]
